FAERS Safety Report 9201168 (Version 2)
Quarter: 2013Q3

REPORT INFORMATION
  Report Type: Report from Study
  Country: BR (occurrence: BR)
  Receive Date: 20130401
  Receipt Date: 20130809
  Transmission Date: 20140515
  Serious: Yes (Other)
  Sender: FDA-Public Use
  Company Number: PHHY2013BR031027

PATIENT
  Sex: Female

DRUGS (2)
  1. DIOVAN HCT [Suspect]
     Indication: HYPERTENSION
     Dosage: 1 DF, QD
  2. SIMVASTATIN [Concomitant]
     Dosage: UNK UKN, UNK
     Route: 048

REACTIONS (4)
  - Breast cancer [Recovered/Resolved]
  - Nervousness [Recovered/Resolved]
  - Blood pressure increased [Not Recovered/Not Resolved]
  - Drug ineffective [Not Recovered/Not Resolved]
